FAERS Safety Report 4968753-1 (Version None)
Quarter: 2006Q2

REPORT INFORMATION
  Report Type: 
  Country: None (occurrence: None)
  Receive Date: 20060405
  Receipt Date: 20060327
  Transmission Date: 20061013
  Serious: Yes (Death)
  Sender: FDA-Public Use
  Company Number: 028-C5013-06020405

PATIENT
  Age: 67 Year
  Sex: Male
  Weight: 69 kg

DRUGS (2)
  1. REVLIMID [Suspect]
     Indication: MULTIPLE MYELOMA
     Dosage: 25 MG, QD X 21D, ORAL
     Route: 048
     Dates: start: 20060105, end: 20060125
  2. DEXAMETHASONE [Suspect]
     Indication: MULTIPLE MYELOMA
     Dosage: DAYS 1-4, 9-12, 17-20, ORAL
     Route: 048
     Dates: start: 20060105, end: 20060125

REACTIONS (4)
  - BACK PAIN [None]
  - CARDIAC DISORDER [None]
  - EXCORIATION [None]
  - OEDEMA PERIPHERAL [None]
